FAERS Safety Report 6524066-8 (Version None)
Quarter: 2009Q4

REPORT INFORMATION
  Report Type: 
  Country: None (occurrence: None)
  Receive Date: 20091230
  Receipt Date: 20091230
  Transmission Date: 20100525
  Serious: Yes (Other)
  Sender: FDA-Public Use
  Company Number: None

PATIENT
  Age: 23 Year
  Sex: Male
  Weight: 75 kg

DRUGS (1)
  1. REMICADE [Suspect]
     Dosage: 400 MG ONCE IV DRIP
     Route: 041
     Dates: start: 20091020, end: 20091020

REACTIONS (5)
  - CHEST DISCOMFORT [None]
  - CHILLS [None]
  - FLUSHING [None]
  - HEADACHE [None]
  - RASH [None]
